FAERS Safety Report 9996398 (Version 1)
Quarter: 2014Q1

REPORT INFORMATION
  Report Type: Report from Study
  Country: BR (occurrence: BR)
  Receive Date: 20140311
  Receipt Date: 20140311
  Transmission Date: 20141002
  Serious: Yes (Other)
  Sender: FDA-Public Use
  Company Number: PHHY2014BR028505

PATIENT
  Sex: Male
  Weight: 84 kg

DRUGS (10)
  1. SIMVASTATIN [Suspect]
     Indication: HYPERTENSION
     Dosage: 1 DF, QD ONCE IN THE MORNING (20 MG)
     Route: 048
  2. CLOPIDOGREL [Suspect]
     Indication: HYPERTENSION
     Dosage: 1 DF, QD ONCE DURING LUNCH
     Route: 048
  3. CLOPIDOGREL [Suspect]
     Indication: CARDIAC DISORDER
  4. PROCORALAN [Concomitant]
     Indication: CHEST PAIN
     Dosage: UNK UKN, UNK
  5. VASTAREL [Concomitant]
     Indication: CHEST PAIN
     Dosage: UNK UKN, UNK
  6. MONOCORDIL [Concomitant]
     Indication: CHEST PAIN
     Dosage: UNK UKN, UNK
  7. MONOCORDIL [Concomitant]
     Indication: HYPERTENSION
  8. OMEPRAZOLE [Concomitant]
     Indication: GASTROINTESTINAL DISORDER
     Dosage: UNK UKN, UNK
  9. PROLOPA [Concomitant]
     Indication: SPINAL DISORDER
     Dosage: UNK UKN, UNK
  10. TRAMADOL [Concomitant]
     Dosage: 1 DF, TID (1 IN MORNING, 1 IN AFTERNOON AND 1 AT NIGHT))

REACTIONS (2)
  - Parkinson^s disease [Unknown]
  - Blood pressure increased [Unknown]
